FAERS Safety Report 24445821 (Version 1)
Quarter: 2024Q4

REPORT INFORMATION
  Report Type: Spontaneous
  Country: US (occurrence: US)
  Receive Date: 20241016
  Receipt Date: 20241016
  Transmission Date: 20250114
  Serious: No
  Sender: Unknown Manufacturer
  Company Number: US-SHIELD THERAPEUTICS-US-STX-24-00129

PATIENT
  Age: 41 Year
  Sex: Female

DRUGS (1)
  1. ACCRUFER [Suspect]
     Active Substance: FERRIC MALTOL
     Indication: Blood iron decreased
     Dosage: 30 MILLIGRAM, BID
     Route: 048
     Dates: start: 20240604, end: 20240611

REACTIONS (6)
  - Feeling abnormal [Unknown]
  - Condition aggravated [Unknown]
  - Dizziness [Unknown]
  - Muscular weakness [Unknown]
  - Myalgia [Unknown]
  - Malaise [Unknown]
